FAERS Safety Report 8557900-0 (Version None)
Quarter: 2012Q3

REPORT INFORMATION
  Report Type: 
  Country: None (occurrence: None)
  Receive Date: 20120801
  Receipt Date: 20120723
  Transmission Date: 20120928
  Serious: Yes (Other)
  Sender: FDA-Public Use
  Company Number: US-JNJFOC-20120712446

PATIENT
  Age: 5 Decade
  Sex: Female

DRUGS (5)
  1. REMICADE [Suspect]
     Dosage: RECEIVED 5 DOSES REMICADE IN 2011
     Route: 042
     Dates: start: 20110101, end: 20120101
  2. ASACOL [Concomitant]
     Route: 065
  3. STEROIDS NOS [Concomitant]
     Route: 065
  4. MERCAPTOPURINE [Concomitant]
     Indication: COLITIS ULCERATIVE
     Route: 065
     Dates: start: 20120501
  5. REMICADE [Suspect]
     Indication: COLITIS ULCERATIVE
     Route: 042
     Dates: start: 20120501

REACTIONS (2)
  - DRUG INEFFECTIVE [None]
  - MALIGNANT MELANOMA [None]
